FAERS Safety Report 5387065-8 (Version None)
Quarter: 2007Q3

REPORT INFORMATION
  Report Type: 
  Country: None (occurrence: None)
  Receive Date: 20070710
  Receipt Date: 20070626
  Transmission Date: 20080115
  Serious: Yes (Other)
  Sender: FDA-Public Use
  Company Number: 235275K07USA

PATIENT
  Age: 51 Year
  Sex: Male
  Weight: 77.1115 kg

DRUGS (1)
  1. REBIF [Suspect]
     Indication: MULTIPLE SCLEROSIS
     Dosage: 44 MCG, 3 IN 1 WEEKS, SUBCUTANEOUS
     Route: 058
     Dates: start: 20070209, end: 20070613

REACTIONS (3)
  - CERVICAL VERTEBRAL FRACTURE [None]
  - INTERVERTEBRAL DISC PROTRUSION [None]
  - SPINAL COMPRESSION FRACTURE [None]
